FAERS Safety Report 11087830 (Version 1)
Quarter: 2015Q2

REPORT INFORMATION
  Report Type: Spontaneous
  Country: US (occurrence: None)
  Receive Date: 20150501
  Receipt Date: 20150501
  Transmission Date: 20150821
  Serious: Yes (Hospitalization)
  Sender: FDA-Public Use
  Company Number: None

PATIENT
  Age: 55 Year
  Sex: Male
  Weight: 88.6 kg

DRUGS (1)
  1. BENZTROPINE [Suspect]
     Active Substance: BENZTROPINE
     Route: 048
     Dates: start: 20150219, end: 20150314

REACTIONS (8)
  - Mental status changes [None]
  - Confusional state [None]
  - Delirium [None]
  - Hallucination, visual [None]
  - Abnormal behaviour [None]
  - Balance disorder [None]
  - Dyskinesia [None]
  - Memory impairment [None]

NARRATIVE: CASE EVENT DATE: 20150314
